FAERS Safety Report 25195808 (Version 1)
Quarter: 2025Q2

REPORT INFORMATION
  Report Type: Spontaneous
  Country: US (occurrence: US)
  Receive Date: 20250415
  Receipt Date: 20250415
  Transmission Date: 20250717
  Serious: No
  Sender: SANOFI AVENTIS
  Company Number: US-SA-2025SA104808

PATIENT
  Sex: Male

DRUGS (14)
  1. DUPIXENT [Suspect]
     Active Substance: DUPILUMAB
     Indication: Dermatitis atopic
     Dosage: 300 MG, QOW
     Route: 058
  2. ARIPIPRAZOLE [Concomitant]
     Active Substance: ARIPIPRAZOLE
  3. CARVEDILOL [Concomitant]
     Active Substance: CARVEDILOL
  4. DOXAZOSIN [Concomitant]
     Active Substance: DOXAZOSIN MESYLATE
  5. ELIQUIS [Concomitant]
     Active Substance: APIXABAN
  6. FAMOTIDINE [Concomitant]
     Active Substance: FAMOTIDINE
  7. FLUOCINONIDE [Concomitant]
     Active Substance: FLUOCINONIDE
  8. FUROSEMIDE [Concomitant]
     Active Substance: FUROSEMIDE
  9. IPRATROPIUM [Concomitant]
     Active Substance: IPRATROPIUM
  10. LAMOTRIGINE [Concomitant]
     Active Substance: LAMOTRIGINE
  11. MONTELUKAST [Concomitant]
     Active Substance: MONTELUKAST
  12. MULTAQ [Concomitant]
     Active Substance: DRONEDARONE
  13. OMEPRAZOLE [Concomitant]
     Active Substance: OMEPRAZOLE
  14. TACROLIMUS [Concomitant]
     Active Substance: TACROLIMUS

REACTIONS (2)
  - Lacrimation increased [Unknown]
  - Rash [Unknown]
